FAERS Safety Report 8532015-6 (Version None)
Quarter: 2012Q3

REPORT INFORMATION
  Report Type: 
  Country: None (occurrence: None)
  Receive Date: 20120723
  Receipt Date: 20120717
  Transmission Date: 20120928
  Serious: Yes (Other)
  Sender: FDA-Public Use
  Company Number: PHHY2012IT062463

PATIENT
  Sex: Male

DRUGS (10)
  1. LEVOTHYROXINE SODIUM [Concomitant]
  2. METHYLPREDNISOLONE [Concomitant]
     Dosage: 4 MG
  3. CARDURA [Concomitant]
     Dosage: 4 MG
  4. OSTEOFOSD3 [Concomitant]
  5. MYCOPHENOLATE MOFETIL [Suspect]
     Indication: PROPHYLAXIS AGAINST TRANSPLANT REJECTION
     Dosage: 1 G
     Route: 048
     Dates: start: 20120606, end: 20120610
  6. ALLOPURINOL [Concomitant]
  7. PANTOPRAZOLE SODIUM [Concomitant]
  8. LASIX [Concomitant]
     Dosage: 100 MG
     Route: 048
  9. ZESTRIL [Concomitant]
     Dosage: 5 MG
  10. NOVARSC [Concomitant]
     Dosage: 5 MG

REACTIONS (4)
  - NEURALGIA [None]
  - GINGIVAL PAIN [None]
  - DIARRHOEA [None]
  - ABDOMINAL PAIN [None]
